FAERS Safety Report 5876279-6 (Version None)
Quarter: 2008Q3

REPORT INFORMATION
  Report Type: 
  Country: None (occurrence: None)
  Receive Date: 20080908
  Receipt Date: 20080902
  Transmission Date: 20090109
  Serious: Yes (Death)
  Sender: FDA-Public Use
  Company Number: 2008AL0010121

PATIENT
  Sex: Male

DRUGS (1)
  1. DOGOXIN TABLETS, USP (AMIDE) [Suspect]
     Dosage: PO
     Route: 048

REACTIONS (1)
  - MULTIPLE INJURIES [None]
